FAERS Safety Report 19610127 (Version 1)
Quarter: 2021Q3

REPORT INFORMATION
  Report Type: Report from Study
  Country: FR (occurrence: FR)
  Receive Date: 20210726
  Receipt Date: 20210726
  Transmission Date: 20211014
  Serious: Yes (Hospitalization)
  Sender: FDA-Public Use
  Company Number: FR-GLAXOSMITHKLINE-FR2021EME053900

PATIENT
  Age: 64 Year
  Sex: Female

DRUGS (1)
  1. MEPOLIZUMAB [Suspect]
     Active Substance: MEPOLIZUMAB
     Indication: ASTHMA
     Dosage: 100 MG
     Route: 042
     Dates: start: 20210220

REACTIONS (7)
  - Asthma [Recovering/Resolving]
  - Fatigue [Not Recovered/Not Resolved]
  - Inappropriate schedule of product administration [Unknown]
  - Wheezing [Recovering/Resolving]
  - Malaise [Recovering/Resolving]
  - Dyspnoea [Not Recovered/Not Resolved]
  - COVID-19 [Not Recovered/Not Resolved]

NARRATIVE: CASE EVENT DATE: 202103
